FAERS Safety Report 6137374-X (Version None)
Quarter: 2009Q1

REPORT INFORMATION
  Report Type: 
  Country: None (occurrence: None)
  Receive Date: 20090330
  Receipt Date: 20090316
  Transmission Date: 20090719
  Serious: Yes (Hospitalization)
  Sender: FDA-Public Use
  Company Number: US-GENENTECH-277836

PATIENT
  Sex: Male
  Weight: 76.7 kg

DRUGS (11)
  1. AVASTIN [Suspect]
     Indication: COLORECTAL CANCER
     Dosage: 395 MG, Q2W
     Route: 042
     Dates: start: 20090126
  2. FLUOROURACIL [Suspect]
     Indication: COLORECTAL CANCER
     Dosage: 780 MG, Q2W
     Route: 040
     Dates: start: 20090126
  3. FLUOROURACIL [Suspect]
     Dosage: 4680 MG, Q2W
     Route: 042
     Dates: start: 20090126
  4. LEUCOVORIN CALCIUM [Suspect]
     Indication: COLORECTAL CANCER
     Dosage: 780 MG, Q2W
     Route: 042
     Dates: start: 20090126
  5. OXALIPLATIN [Suspect]
     Indication: COLORECTAL CANCER
     Dosage: 165 MG, Q2W
     Route: 042
     Dates: start: 20090126
  6. LORTAB [Concomitant]
     Indication: DRUG USE FOR UNKNOWN INDICATION
     Dosage: UNK
     Dates: start: 20081201
  7. XANAX [Concomitant]
     Indication: DRUG USE FOR UNKNOWN INDICATION
     Dosage: UNK
     Dates: start: 20081201
  8. PROTONIX [Concomitant]
     Indication: DRUG USE FOR UNKNOWN INDICATION
     Dosage: UNK
     Dates: start: 20081201
  9. COREG [Concomitant]
     Indication: DRUG USE FOR UNKNOWN INDICATION
     Dosage: UNK
     Dates: start: 20080101
  10. LEVOFLOXACIN [Concomitant]
     Indication: DRUG USE FOR UNKNOWN INDICATION
     Dosage: UNK
     Dates: start: 20090123
  11. ACYCLOVIR [Concomitant]
     Indication: DRUG USE FOR UNKNOWN INDICATION
     Dosage: UNK
     Dates: start: 20090123

REACTIONS (3)
  - CARDIAC FAILURE CONGESTIVE [None]
  - CORONARY ARTERY DISEASE [None]
  - RESPIRATORY FAILURE [None]
